FAERS Safety Report 12946721 (Version 2)
Quarter: 2018Q1

REPORT INFORMATION
  Report Type: Spontaneous
  Country: US (occurrence: US)
  Receive Date: 20161116
  Receipt Date: 20180307
  Transmission Date: 20180508
  Serious: No
  Sender: FDA-Public Use
  Company Number: PHEH2016US029683

PATIENT
  Sex: Female

DRUGS (1)
  1. TASIGNA [Suspect]
     Active Substance: NILOTINIB
     Indication: EXPOSURE VIA FATHER
     Dosage: EXPOSURE VIA FATHER
     Route: 050

REACTIONS (1)
  - Exposure via partner [Unknown]
